FAERS Safety Report 7920742-0 (Version None)
Quarter: 2011Q4

REPORT INFORMATION
  Report Type: 
  Country: None (occurrence: None)
  Receive Date: 20111117
  Receipt Date: 20111027
  Transmission Date: 20120403
  Serious: Yes (Other)
  Sender: FDA-Public Use
  Company Number: ES-JNJFOC-20110703101

PATIENT
  Sex: Male
  Weight: 104 kg

DRUGS (7)
  1. RISPERDAL [Suspect]
     Indication: BIPOLAR DISORDER
     Route: 048
     Dates: start: 20090801
  2. LITHIUM CARBONATE [Concomitant]
     Indication: BIPOLAR DISORDER
     Dosage: MORNING AND EVENING
     Route: 065
     Dates: start: 19920101
  3. RISPERDAL [Suspect]
     Route: 048
     Dates: start: 20030101, end: 20080101
  4. RISPERDAL [Suspect]
     Route: 048
     Dates: start: 20090801, end: 20090801
  5. RISPERDAL [Suspect]
     Route: 048
     Dates: start: 20090101, end: 20090801
  6. LORAZEPAM [Concomitant]
     Indication: BIPOLAR DISORDER
     Dosage: (MORNING, MID-DAY AND EVENING)
     Route: 065
  7. RISPERDAL [Suspect]
     Route: 048
     Dates: end: 20110801

REACTIONS (1)
  - THROMBOCYTOPENIA [None]
